FAERS Safety Report 8375228-9 (Version None)
Quarter: 2012Q2

REPORT INFORMATION
  Report Type: 
  Country: None (occurrence: None)
  Receive Date: 20120522
  Receipt Date: 20120508
  Transmission Date: 20120825
  Serious: Yes (Hospitalization)
  Sender: FDA-Public Use
  Company Number: GB-RANBAXY-2012R1-56341

PATIENT
  Age: 83 Year
  Sex: Female

DRUGS (4)
  1. ACETAMINOPHEN [Suspect]
     Dosage: UNK
     Route: 042
  2. ACETAMINOPHEN [Suspect]
     Indication: BACK PAIN
     Dosage: 2G DAILY
     Route: 065
  3. FLUCLOXACILLIN [Concomitant]
     Indication: ABSCESS BACTERIAL
     Dosage: UNK
     Route: 065
  4. ACETAMINOPHEN [Suspect]
     Dosage: 1G QID
     Route: 065

REACTIONS (1)
  - METABOLIC ACIDOSIS [None]
